FAERS Safety Report 7636803-X (Version None)
Quarter: 2011Q3

REPORT INFORMATION
  Report Type: 
  Country: None (occurrence: None)
  Receive Date: 20110726
  Receipt Date: 20110712
  Transmission Date: 20111222
  Serious: Yes (Other)
  Sender: FDA-Public Use
  Company Number: JP-GENENTECH-314961

PATIENT
  Sex: Female

DRUGS (8)
  1. LEVOFLOXACIN [Concomitant]
     Indication: PRODUCT USED FOR UNKNOWN INDICATION
     Dosage: UNK
     Dates: start: 20100901, end: 20101201
  2. MOXIFLOXACIN HYDROCHLORIDE [Concomitant]
     Indication: PRODUCT USED FOR UNKNOWN INDICATION
     Dosage: UNK
     Dates: start: 20100901, end: 20100901
  3. HYALEIN [Concomitant]
     Indication: PRODUCT USED FOR UNKNOWN INDICATION
  4. PATANOL [Concomitant]
     Indication: PRODUCT USED FOR UNKNOWN INDICATION
  5. KARY UNI [Concomitant]
     Indication: PRODUCT USED FOR UNKNOWN INDICATION
  6. RANIBIZUMAB [Suspect]
     Indication: AGE-RELATED MACULAR DEGENERATION
     Dosage: 0.05 ML, UNKNOWN
     Route: 031
     Dates: start: 20100907
  7. RANIBIZUMAB [Suspect]
     Dosage: 0.05 ML, UNKNOWN
     Route: 031
     Dates: start: 20101213
  8. RANIBIZUMAB [Suspect]
     Dosage: 0.05 ML, UNKNOWN
     Route: 031
     Dates: start: 20101101

REACTIONS (5)
  - CORNEAL EROSION [None]
  - CONDITION AGGRAVATED [None]
  - CORNEAL OPACITY [None]
  - HERPES SIMPLEX SEROLOGY POSITIVE [None]
  - VISUAL ACUITY REDUCED [None]
